FAERS Safety Report 5509405-9 (Version None)
Quarter: 2007Q4

REPORT INFORMATION
  Report Type: 
  Country: None (occurrence: None)
  Receive Date: 20071107
  Receipt Date: 20071031
  Transmission Date: 20080405
  Serious: Yes (Other)
  Sender: FDA-Public Use
  Company Number: US-PFIZER INC-2007079296

PATIENT
  Sex: Female

DRUGS (4)
  1. DETROL LA [Suspect]
     Indication: POLLAKIURIA
     Route: 048
     Dates: start: 20050101, end: 20070901
  2. DETROL LA [Suspect]
     Indication: MICTURITION URGENCY
  3. EVISTA [Concomitant]
  4. VALIUM [Concomitant]

REACTIONS (8)
  - ABDOMINAL PAIN UPPER [None]
  - CONSTIPATION [None]
  - DRY MOUTH [None]
  - FAECES HARD [None]
  - HEADACHE [None]
  - OSTEOMYELITIS [None]
  - TOE AMPUTATION [None]
  - VAGINAL PROLAPSE [None]
